FAERS Safety Report 23358726 (Version 1)
Quarter: 2024Q1

REPORT INFORMATION
  Report Type: Spontaneous
  Country: CN (occurrence: CN)
  Receive Date: 20240102
  Receipt Date: 20240102
  Transmission Date: 20240410
  Serious: Yes (Disabling)
  Sender: FDA-Public Use
  Company Number: CN-Eisai-EC-2023-155735

PATIENT
  Age: 53 Year
  Sex: Female

DRUGS (6)
  1. RABEPRAZOLE [Suspect]
     Active Substance: RABEPRAZOLE
     Indication: Helicobacter infection
     Route: 048
     Dates: start: 20231206, end: 20231210
  2. RABEPRAZOLE [Suspect]
     Active Substance: RABEPRAZOLE
     Route: 048
     Dates: start: 20231212, end: 20231215
  3. MINOCYCLINE HYDROCHLORIDE [Suspect]
     Active Substance: MINOCYCLINE HYDROCHLORIDE
     Indication: Helicobacter infection
     Route: 048
     Dates: start: 20231206, end: 20231210
  4. MINOCYCLINE HYDROCHLORIDE [Suspect]
     Active Substance: MINOCYCLINE HYDROCHLORIDE
     Route: 048
     Dates: start: 20231212, end: 20231215
  5. AMOXICILLIN [Concomitant]
     Active Substance: AMOXICILLIN
     Indication: Helicobacter infection
     Route: 048
     Dates: start: 20231206, end: 20231210
  6. AMOXICILLIN [Concomitant]
     Active Substance: AMOXICILLIN
     Route: 048
     Dates: start: 20231212

REACTIONS (2)
  - Hypersensitivity [Recovering/Resolving]
  - Jaundice [Recovering/Resolving]

NARRATIVE: CASE EVENT DATE: 20231210
